FAERS Safety Report 23500553 (Version 1)
Quarter: 2024Q1

REPORT INFORMATION
  Report Type: Spontaneous
  Country: US (occurrence: US)
  Receive Date: 20240208
  Receipt Date: 20240208
  Transmission Date: 20240410
  Serious: No
  Sender: FDA-Public Use
  Company Number: US-AMNEAL PHARMACEUTICALS-2023-AMRX-01446

PATIENT
  Sex: Male
  Weight: 81.633 kg

DRUGS (2)
  1. NAPROXEN [Suspect]
     Active Substance: NAPROXEN
     Indication: Limb injury
     Dosage: 2 TIMES PER DAY
     Route: 048
     Dates: start: 20230423, end: 20230424
  2. AMLODIPINE [Concomitant]
     Active Substance: AMLODIPINE BESYLATE
     Indication: Hypertension
     Dosage: 10 MG ONCE DAILY
     Route: 065

REACTIONS (1)
  - Inadequate analgesia [Not Recovered/Not Resolved]
